FAERS Safety Report 4889398-8 (Version None)
Quarter: 2006Q1

REPORT INFORMATION
  Report Type: 
  Country: None (occurrence: None)
  Receive Date: 20060120
  Receipt Date: 20060120
  Transmission Date: 20060701
  Serious: Yes (Hospitalization)
  Sender: FDA-Public Use
  Company Number: None

PATIENT
  Age: 23 Year
  Sex: Male

DRUGS (2)
  1. NAPROSYN [Suspect]
     Indication: JOINT SPRAIN
  2. NAPROSYN [Suspect]
     Indication: PAIN

REACTIONS (4)
  - ASTHENIA [None]
  - DYSPNOEA [None]
  - MELAENA [None]
  - UPPER GASTROINTESTINAL HAEMORRHAGE [None]
